FAERS Safety Report 7548680-6 (Version None)
Quarter: 2011Q2

REPORT INFORMATION
  Report Type: 
  Country: None (occurrence: None)
  Receive Date: 20110608
  Receipt Date: 20110525
  Transmission Date: 20111010
  Serious: Yes (Hospitalization, Other)
  Sender: FDA-Public Use
  Company Number: 2011P1006341

PATIENT
  Age: 37 Year
  Sex: Male
  Weight: 120.2032 kg

DRUGS (6)
  1. FENTANYL CITRATE [Suspect]
     Indication: BACK PAIN
     Dates: start: 20060101, end: 20100501
  2. OXYCONTIN [Concomitant]
  3. XANAX [Concomitant]
  4. FENTANYL-75 [Suspect]
     Indication: PAIN
     Dosage: 1 PATCH, Q3D, TDER
     Route: 062
     Dates: start: 20100501
  5. MORPHINE [Concomitant]
  6. BUPIVACAINE HCL [Concomitant]

REACTIONS (2)
  - PRODUCT ADHESION ISSUE [None]
  - DRUG WITHDRAWAL SYNDROME [None]
